FAERS Safety Report 14156092 (Version 1)
Quarter: 2017Q4

REPORT INFORMATION
  Report Type: Report from Study
  Country: US (occurrence: US)
  Receive Date: 20171103
  Receipt Date: 20171103
  Transmission Date: 20180321
  Serious: Yes (Other)
  Sender: FDA-Public Use
  Company Number: US-AMGEN-USASL2017165371

PATIENT
  Age: 37 Year
  Sex: Male

DRUGS (1)
  1. ENBREL [Suspect]
     Active Substance: ETANERCEPT
     Indication: ANKYLOSING SPONDYLITIS
     Dosage: 50 MG, QWK
     Route: 065

REACTIONS (5)
  - Loss of consciousness [Not Recovered/Not Resolved]
  - Seizure [Unknown]
  - Fatigue [Not Recovered/Not Resolved]
  - Electrocardiogram QT prolonged [Unknown]
  - Stress [Unknown]
